FAERS Safety Report 17048130 (Version 1)
Quarter: 2019Q4

REPORT INFORMATION
  Report Type: Spontaneous
  Country: US (occurrence: US)
  Receive Date: 20191019
  Receipt Date: 20191019
  Transmission Date: 20200122
  Serious: Yes (Hospitalization)
  Sender: FDA-Public Use
  Company Number: None

PATIENT
  Age: 87 Year
  Sex: Male

DRUGS (1)
  1. APIXABAN [Suspect]
     Active Substance: APIXABAN
     Indication: ATRIAL FIBRILLATION
     Route: 048
     Dates: start: 20151204

REACTIONS (5)
  - Blood creatinine abnormal [None]
  - Gastrointestinal haemorrhage [None]
  - Anaemia [None]
  - Rectal haemorrhage [None]
  - Diverticulum [None]

NARRATIVE: CASE EVENT DATE: 20190618
